FAERS Safety Report 11106326 (Version 2)
Quarter: 2015Q3

REPORT INFORMATION
  Report Type: Report from Study
  Country: US (occurrence: None)
  Receive Date: 20150511
  Receipt Date: 20150706
  Transmission Date: 20151125
  Serious: No
  Sender: FDA-Public Use
  Company Number: US-2015CRT000293

PATIENT
  Age: 51 Year
  Sex: Female
  Weight: 72.6 kg

DRUGS (8)
  1. ORAL CONTRACEPTIVE NOS [Concomitant]
     Active Substance: UNSPECIFIED INGREDIENT
  2. TYLENOL [Concomitant]
     Active Substance: ACETAMINOPHEN
  3. KORLYM [Suspect]
     Active Substance: MIFEPRISTONE
     Indication: CUSHING^S SYNDROME
     Dosage: 600 MG, THURSDAY, FRIDAY, SATURDAY, SUNDAY, ORAL
     Route: 048
     Dates: start: 201408, end: 201503
  4. METFORMIN [Concomitant]
     Active Substance: METFORMIN HYDROCHLORIDE
  5. ANTI-PARKINSON DRUGS [Concomitant]
     Active Substance: UNSPECIFIED INGREDIENT
  6. MUCINEX D (GUAIFENESIN, PSEUDOEPHEDRINE HYDROCHLORIDE) [Concomitant]
  7. ZYRTEC [Concomitant]
     Active Substance: CETIRIZINE HYDROCHLORIDE
  8. JANUMET [Concomitant]
     Active Substance: METFORMIN HYDROCHLORIDE\SITAGLIPTIN PHOSPHATE

REACTIONS (8)
  - Biopsy [None]
  - Migraine [None]
  - Nausea [None]
  - Blood glucose increased [None]
  - Bedridden [None]
  - Vomiting [None]
  - Fatigue [None]
  - Uterine dilation and curettage [None]

NARRATIVE: CASE EVENT DATE: 2014
